FAERS Safety Report 6242817-7 (Version None)
Quarter: 2009Q2

REPORT INFORMATION
  Report Type: 
  Country: None (occurrence: None)
  Receive Date: 20090624
  Receipt Date: 20090615
  Transmission Date: 20091009
  Serious: Yes (Congenital Anomaly)
  Sender: FDA-Public Use
  Company Number: A0679353A

PATIENT
  Sex: Male
  Weight: 3.8 kg

DRUGS (6)
  1. PAXIL CR [Suspect]
     Indication: DEPRESSION
  2. VITAMIN TAB [Concomitant]
  3. ALBUTEROL [Concomitant]
  4. ADVAIR HFA [Concomitant]
  5. PHENERGAN [Concomitant]
     Dates: start: 20030425
  6. DEMEROL [Concomitant]
     Dates: start: 20030425

REACTIONS (3)
  - ATRIAL SEPTAL DEFECT [None]
  - DRUG EXPOSURE DURING PREGNANCY [None]
  - VENTRICULAR SEPTAL DEFECT [None]
